FAERS Safety Report 11860778 (Version 2)
Quarter: 2016Q1

REPORT INFORMATION
  Report Type: Report from Study
  Country: BR (occurrence: BR)
  Receive Date: 20151222
  Receipt Date: 20160105
  Transmission Date: 20160526
  Serious: Yes (Life-Threatening, Hospitalization)
  Sender: FDA-Public Use
  Company Number: PHHY2015BR166720

PATIENT
  Age: 70 Year
  Sex: Female
  Weight: 76 kg

DRUGS (1)
  1. ACLASTA [Suspect]
     Active Substance: ZOLEDRONIC ACID
     Indication: OSTEOPOROSIS
     Dosage: 5 MG, Q12MO
     Route: 042
     Dates: start: 20151001

REACTIONS (4)
  - Drug administration error [Recovered/Resolved]
  - Subcutaneous abscess [Recovered/Resolved]
  - Diabetes mellitus inadequate control [Recovered/Resolved]
  - Apparent death [Recovered/Resolved]

NARRATIVE: CASE EVENT DATE: 201510
